FAERS Safety Report 5262045-1 (Version None)
Quarter: 2007Q1

REPORT INFORMATION
  Report Type: 
  Country: None (occurrence: None)
  Receive Date: 20061208
  Receipt Date: 20060725
  Transmission Date: 20070707
  Serious: Yes (Other)
  Sender: FDA-Public Use
  Company Number: USA-2006-0024715

PATIENT
  Age: 45 Year
  Sex: Male
  Weight: 79.4 kg

DRUGS (2)
  1. OXYCONTIN [Suspect]
     Indication: PAIN
     Dosage: 80 MG, TID
     Dates: start: 20051116, end: 20060503
  2. ROXICODONE [Concomitant]

REACTIONS (3)
  - DRUG ABUSER [None]
  - EUPHORIC MOOD [None]
  - INTENTIONAL DRUG MISUSE [None]
